FAERS Safety Report 15587008 (Version 1)
Quarter: 2018Q4

REPORT INFORMATION
  Report Type: Spontaneous
  Country: SE (occurrence: SE)
  Receive Date: 20181105
  Receipt Date: 20181105
  Transmission Date: 20190205
  Serious: Yes (Other)
  Sender: FDA-Public Use
  Company Number: SE-ELI_LILLY_AND_COMPANY-SE201811000860

PATIENT
  Age: 71 Year
  Sex: Female

DRUGS (5)
  1. CARBOPLATIN. [Interacting]
     Active Substance: CARBOPLATIN
     Indication: OVARIAN CANCER
     Dosage: UNK UNK, UNKNOWN
     Route: 065
  2. BRINTELLIX [Interacting]
     Active Substance: VORTIOXETINE HYDROBROMIDE
     Dosage: 5 MG, DAILY
     Route: 065
  3. GEMZAR [Suspect]
     Active Substance: GEMCITABINE HYDROCHLORIDE
     Indication: OVARIAN CANCER
     Dosage: UNK UNK, UNKNOWN
     Route: 065
  4. CAELYX [Interacting]
     Active Substance: DOXORUBICIN HYDROCHLORIDE
     Indication: OVARIAN CANCER
     Dosage: UNK UNK, UNKNOWN
     Route: 065
  5. BRINTELLIX [Interacting]
     Active Substance: VORTIOXETINE HYDROBROMIDE
     Indication: DEPRESSION
     Dosage: 10 MG, DAILY
     Route: 065

REACTIONS (3)
  - Drug interaction [Unknown]
  - White blood cell count decreased [Not Recovered/Not Resolved]
  - Gingival disorder [Not Recovered/Not Resolved]
